FAERS Safety Report 23898568 (Version 2)
Quarter: 2024Q4

REPORT INFORMATION
  Report Type: Spontaneous
  Country: IT (occurrence: IT)
  Receive Date: 20240525
  Receipt Date: 20241003
  Transmission Date: 20250115
  Serious: Yes (Death, Hospitalization, Other)
  Sender: Haleon PLC
  Company Number: IT-HALEON-2176686

PATIENT
  Sex: Female

DRUGS (2)
  1. ACETAMINOPHEN [Suspect]
     Active Substance: ACETAMINOPHEN
     Indication: Pyrexia
     Route: 064
  2. AMOXICILLIN [Suspect]
     Active Substance: AMOXICILLIN
     Indication: Pyrexia
     Route: 064

REACTIONS (10)
  - COVID-19 [Fatal]
  - Foetal death [Fatal]
  - Foetal exposure during pregnancy [Unknown]
  - Foetal hypokinesia [Unknown]
  - Skin exfoliation [Unknown]
  - Hypoxia [Unknown]
  - Petechiae [Unknown]
  - Haemorrhage [Unknown]
  - Angiopathy [Unknown]
  - Nucleated red cells [Unknown]
